FAERS Safety Report 6787219-X (Version None)
Quarter: 2010Q2

REPORT INFORMATION
  Report Type: 
  Country: None (occurrence: None)
  Receive Date: 20100623
  Receipt Date: 20100614
  Transmission Date: 20101027
  Serious: Yes (Other)
  Sender: FDA-Public Use
  Company Number: CA-ABBOTT-10P-028-0649404-00

PATIENT
  Sex: Female
  Weight: 51 kg

DRUGS (2)
  1. HUMIRA [Suspect]
     Indication: CROHN'S DISEASE
     Route: 058
     Dates: start: 20090624
  2. HUMIRA [Suspect]
     Route: 058
     Dates: start: 20100609

REACTIONS (7)
  - DIARRHOEA [None]
  - DIARRHOEA HAEMORRHAGIC [None]
  - ERYTHEMA NODOSUM [None]
  - PAIN [None]
  - PYREXIA [None]
  - RECTAL HAEMORRHAGE [None]
  - WEIGHT DECREASED [None]
